FAERS Safety Report 5442650-X (Version None)
Quarter: 2007Q3

REPORT INFORMATION
  Report Type: 
  Country: None (occurrence: None)
  Receive Date: 20070904
  Receipt Date: 20070821
  Transmission Date: 20080115
  Serious: Yes (Death)
  Sender: FDA-Public Use
  Company Number: BR-SHR-BR-2007-031450

PATIENT
  Age: 50 Year
  Sex: Female

DRUGS (1)
  1. BETAFERON [Suspect]
     Dosage: UNK, UNK

REACTIONS (1)
  - DEATH [None]
